FAERS Safety Report 13272494 (Version 4)
Quarter: 2017Q3

REPORT INFORMATION
  Report Type: Report from Study
  Country: JP (occurrence: JP)
  Receive Date: 20170227
  Receipt Date: 20170831
  Transmission Date: 20171127
  Serious: Yes (Hospitalization, Other)
  Sender: FDA-Public Use
  Company Number: JP-IPSEN BIOPHARMACEUTICALS, INC.-2015-7433

PATIENT
  Age: 38 Year
  Sex: Female

DRUGS (16)
  1. SOMATULINE 60MG [Suspect]
     Active Substance: LANREOTIDE ACETATE
     Indication: ACROMEGALY
     Dosage: 60 MG
     Route: 058
     Dates: start: 20140510, end: 20160401
  2. SOMATULINE 60MG [Suspect]
     Active Substance: LANREOTIDE ACETATE
     Dosage: 60 MG
     Route: 058
     Dates: start: 20161001, end: 20161001
  3. CABASER [Suspect]
     Active Substance: CABERGOLINE
     Indication: ACROMEGALY
     Dosage: 2 MG/WEEK
     Route: 048
     Dates: start: 20110713, end: 20170502
  4. THYRADIN S [Suspect]
     Active Substance: LEVOTHYROXINE SODIUM
     Indication: PRODUCT USED FOR UNKNOWN INDICATION
     Route: 048
     Dates: end: 20170303
  5. SOMATULINE 60MG [Suspect]
     Active Substance: LANREOTIDE ACETATE
     Dosage: 90 MG
     Route: 058
     Dates: start: 20160502, end: 20160903
  6. SOMATULINE 60MG [Suspect]
     Active Substance: LANREOTIDE ACETATE
     Dosage: 60 MG
     Route: 058
     Dates: start: 20170209, end: 20170209
  7. SOMATULINE 60MG [Suspect]
     Active Substance: LANREOTIDE ACETATE
     Dosage: 90 MG
     Route: 058
     Dates: start: 20161102, end: 20170104
  8. SOMATULINE 60MG [Suspect]
     Active Substance: LANREOTIDE ACETATE
     Dosage: 60 MG
     Route: 058
     Dates: start: 20170502
  9. FERROMIA [Concomitant]
     Active Substance: FERROUS CITRATE
     Route: 048
     Dates: end: 20160531
  10. PLAVIX [Concomitant]
     Active Substance: CLOPIDOGREL BISULFATE
     Route: 048
     Dates: start: 20140809, end: 20141108
  11. THYRADIN S [Suspect]
     Active Substance: LEVOTHYROXINE SODIUM
     Route: 048
     Dates: start: 20170304
  12. SOMATULINE 60MG [Suspect]
     Active Substance: LANREOTIDE ACETATE
     Dosage: 90 MG
     Route: 058
     Dates: start: 20170304, end: 20170401
  13. CALONAL [Suspect]
     Active Substance: ACETAMINOPHEN
     Indication: HEADACHE
     Route: 048
     Dates: start: 20160206, end: 20160401
  14. FERROMIA [Concomitant]
     Active Substance: FERROUS CITRATE
     Route: 048
     Dates: start: 20160601
  15. PLAVIX [Concomitant]
     Active Substance: CLOPIDOGREL BISULFATE
     Route: 048
     Dates: end: 20140712
  16. PLAVIX [Concomitant]
     Active Substance: CLOPIDOGREL BISULFATE
     Route: 048
     Dates: start: 20141206, end: 20161001

REACTIONS (16)
  - Thyroxine free increased [Recovered/Resolved]
  - Exposure during pregnancy [Unknown]
  - Blood thyroid stimulating hormone decreased [Not Recovered/Not Resolved]
  - Blood prolactin increased [Not Recovered/Not Resolved]
  - Injection site discomfort [Recovered/Resolved]
  - Headache [Recovering/Resolving]
  - Gestational diabetes [Recovered/Resolved]
  - Haemorrhage [Unknown]
  - Insulin-like growth factor decreased [Recovered/Resolved]
  - Premature labour [Recovered/Resolved]
  - Protein total decreased [Recovered/Resolved]
  - Protein total decreased [Recovered/Resolved]
  - Blood growth hormone increased [Recovered/Resolved]
  - Placenta praevia [Recovered/Resolved]
  - Endometriosis [Recovering/Resolving]
  - Gestational hypertension [Recovered/Resolved]

NARRATIVE: CASE EVENT DATE: 20140614
